FAERS Safety Report 5510671-4 (Version None)
Quarter: 2007Q4

REPORT INFORMATION
  Report Type: 
  Country: None (occurrence: None)
  Receive Date: 20071108
  Receipt Date: 20071108
  Transmission Date: 20080405
  Serious: Yes (Other)
  Sender: FDA-Public Use
  Company Number: A0692652A

PATIENT
  Age: 66 Year
  Sex: Female

DRUGS (1)
  1. TUMS ULTRA TABLETS, ASSORTED BERRIES [Suspect]
     Route: 048

REACTIONS (1)
  - NEPHROLITHIASIS [None]
